FAERS Safety Report 6290161-4 (Version None)
Quarter: 2009Q3

REPORT INFORMATION
  Report Type: 
  Country: None (occurrence: None)
  Receive Date: 20090730
  Receipt Date: 20081218
  Transmission Date: 20100115
  Serious: No
  Sender: FDA-Public Use
  Company Number: US-BRISTOL-MYERS SQUIBB COMPANY-14449409

PATIENT
  Age: 87 Year
  Sex: Female
  Weight: 70 kg

DRUGS (7)
  1. COUMADIN [Suspect]
     Indication: CARDIAC FLUTTER
     Dosage: DOSE REDUCED 4.5 MG QD (2.5 MG 1TAB AND COUMADIN 2MG 1TAB), 3.5 MG QD (2.5 MG 1 TAB, 2 MG 1/2 TAB).
     Dates: start: 20081202
  2. SYNTHROID [Concomitant]
  3. ZOCOR [Concomitant]
  4. AVALIDE [Concomitant]
  5. ATENOLOL [Concomitant]
  6. ASCORBIC ACID [Concomitant]
  7. TRAMADOL [Concomitant]

REACTIONS (2)
  - PAIN IN EXTREMITY [None]
  - PERIPHERAL COLDNESS [None]
